FAERS Safety Report 9214606 (Version 1)
Quarter: 2013Q2

REPORT INFORMATION
  Report Type: Spontaneous
  Country: US (occurrence: US)
  Receive Date: 20130405
  Receipt Date: 20130405
  Transmission Date: 20140414
  Serious: Yes (Hospitalization)
  Sender: FDA-Public Use
  Company Number: US-BAYER-2013-042059

PATIENT
  Age: 58 Year
  Sex: Male
  Weight: 92.97 kg

DRUGS (6)
  1. BAYER ASPIRIN REGIMEN REGULAR 325 MG STRENGTH [Suspect]
     Indication: ISCHAEMIC HEART DISEASE PROPHYLAXIS
     Dosage: 2 DF, QD
     Route: 048
     Dates: start: 1986, end: 201301
  2. PLAVIX [Concomitant]
  3. TRAMADOL [Concomitant]
  4. CARDIZEM [Concomitant]
  5. LISINOPRIL [Concomitant]
  6. CARVEDILOL [Concomitant]

REACTIONS (4)
  - Gastric haemorrhage [None]
  - Faeces discoloured [None]
  - Haemoglobin decreased [None]
  - Incorrect dose administered [None]
